FAERS Safety Report 6302375-5 (Version None)
Quarter: 2009Q3

REPORT INFORMATION
  Report Type: 
  Country: None (occurrence: None)
  Receive Date: 20090810
  Receipt Date: 20090731
  Transmission Date: 20100115
  Serious: Yes (Hospitalization)
  Sender: FDA-Public Use
  Company Number: PHHY2009GB32359

PATIENT
  Age: 65 Year
  Sex: Male

DRUGS (4)
  1. CARBAMAZEPINE [Suspect]
     Dosage: 500 MG, QD
     Route: 048
  2. PHENELZINE [Suspect]
     Dosage: 15 MG, BID
     Route: 048
     Dates: start: 20090501
  3. PHENELZINE [Suspect]
     Dosage: UNK
  4. RAMIPRIL [Concomitant]
     Dosage: 5 MG, QD
     Route: 048

REACTIONS (4)
  - HEADACHE [None]
  - LACK OF SPONTANEOUS SPEECH [None]
  - LETHARGY [None]
  - SOMNOLENCE [None]
